FAERS Safety Report 5273303-9 (Version None)
Quarter: 2007Q1

REPORT INFORMATION
  Report Type: 
  Country: None (occurrence: None)
  Receive Date: 20070319
  Receipt Date: 20070308
  Transmission Date: 20070707
  Serious: Yes (Hospitalization)
  Sender: FDA-Public Use
  Company Number: GXKR2007CN02400

PATIENT
  Age: 23 Year
  Sex: Female

DRUGS (2)
  1. DICLOFENAC (NGX)(DICLOFENAC) UNKNOWN [Suspect]
     Indication: UPPER RESPIRATORY TRACT INFECTION
     Dosage: 25 MG, QID
     Dates: start: 20040401
  2. HERBAL EXTRACTS NOS (NO INGREDIENTS/SUBSTANCES) TABLET [Suspect]
     Indication: WEIGHT CONTROL
     Dosage: 6 TABLETS, QD

REACTIONS (5)
  - DRUG INTERACTION [None]
  - KIDNEY FIBROSIS [None]
  - RENAL FAILURE ACUTE [None]
  - RENAL TUBULAR ATROPHY [None]
  - UPPER RESPIRATORY TRACT INFECTION [None]
